FAERS Safety Report 10764910 (Version 1)
Quarter: 2015Q1

REPORT INFORMATION
  Report Type: Spontaneous
  Country: NZ (occurrence: NZ)
  Receive Date: 20150205
  Receipt Date: 20150205
  Transmission Date: 20150721
  Serious: Yes (Death)
  Sender: FDA-Public Use
  Company Number: NZ-009507513-1501NZL010920

PATIENT
  Age: 53 Year
  Sex: Male

DRUGS (5)
  1. ASPIRIN. [Suspect]
     Active Substance: ASPIRIN
     Dosage: 100 MG, UNK
     Route: 048
     Dates: end: 200710
  2. HEPATITIS A VACCINE NOS [Suspect]
     Active Substance: HEPATITIS A VACCINE, INACTIVATED
     Dosage: 1 ML, UNK
     Route: 030
     Dates: start: 200707, end: 200707
  3. SULFASALAZINE. [Suspect]
     Active Substance: SULFASALAZINE
     Dosage: 1.5 G, UNK
     Route: 048
     Dates: end: 200710
  4. TYPHOID VACCINE NOS [Suspect]
     Active Substance: TYPHOID VACCINE ANTIGENS
     Dosage: UNK
     Route: 030
     Dates: start: 200707, end: 200707
  5. SIMVASTATIN. [Suspect]
     Active Substance: SIMVASTATIN
     Dosage: 80 MG, UNK
     Route: 048
     Dates: start: 2003, end: 200710

REACTIONS (1)
  - Rhabdomyolysis [Fatal]

NARRATIVE: CASE EVENT DATE: 200802
